FAERS Safety Report 7880398-2 (Version None)
Quarter: 2011Q4

REPORT INFORMATION
  Report Type: 
  Country: None (occurrence: None)
  Receive Date: 20111101
  Receipt Date: 20111019
  Transmission Date: 20120403
  Serious: Yes (Other)
  Sender: FDA-Public Use
  Company Number: PHHY2011JP92874

PATIENT
  Age: 48 Year
  Sex: Male

DRUGS (4)
  1. MYCOPHENOLATE MOFETIL [Concomitant]
     Indication: RENAL TRANSPLANT
     Dosage: UNK UKN, UNK
     Route: 048
  2. CYCLOSPORINE [Suspect]
     Indication: RENAL TRANSPLANT
     Dosage: UNK UKN, UNK
  3. PREDNISOLONE [Concomitant]
     Indication: RENAL TRANSPLANT
     Dosage: UNK UKN, UNK
  4. BASILIXIMAB [Suspect]
     Indication: RENAL TRANSPLANT
     Dosage: UNK UKN, UNK
     Route: 048

REACTIONS (4)
  - URINARY RETENTION [None]
  - KIDNEY TRANSPLANT REJECTION [None]
  - ATRIAL FIBRILLATION [None]
  - CARDIAC FAILURE [None]
